FAERS Safety Report 4357188-0 (Version None)
Quarter: 2004Q2

REPORT INFORMATION
  Report Type: 
  Country: None (occurrence: None)
  Receive Date: 20040512
  Receipt Date: 20040512
  Transmission Date: 20050107
  Serious: No
  Sender: FDA-Public Use
  Company Number: None

PATIENT
  Age: 30 Month
  Sex: Female
  Weight: 6.804 kg

DRUGS (2)
  1. EFFEXOR XR [Suspect]
     Indication: DEPRESSION
     Dosage: 75 MG AT BEDTIME ORAL
     Route: 048
     Dates: start: 20030804, end: 20040501
  2. EFFEXOR XR [Suspect]
     Indication: DISTURBANCE IN ATTENTION
     Dosage: 75 MG AT BEDTIME ORAL
     Route: 048
     Dates: start: 20030804, end: 20040501

REACTIONS (2)
  - CONSTIPATION [None]
  - WEIGHT INCREASED [None]
